FAERS Safety Report 4492762-2 (Version None)
Quarter: 2004Q4

REPORT INFORMATION
  Report Type: 
  Country: None (occurrence: None)
  Receive Date: 20041102
  Receipt Date: 20041018
  Transmission Date: 20050328
  Serious: Yes (Other)
  Sender: FDA-Public Use
  Company Number: B0349099A

PATIENT
  Age: 38 Year
  Sex: Male

DRUGS (1)
  1. LAMICTAL [Suspect]
     Dosage: SEE DOSAGE TEXT/ORAL
     Route: 048
     Dates: start: 20030101

REACTIONS (1)
  - RETINAL DETACHMENT [None]
